FAERS Safety Report 13959559 (Version 1)
Quarter: 2017Q3

REPORT INFORMATION
  Report Type: Spontaneous
  Country: US (occurrence: None)
  Receive Date: 20170912
  Receipt Date: 20170912
  Transmission Date: 20171128
  Serious: Yes (Hospitalization)
  Sender: FDA-Public Use
  Company Number: None

PATIENT
  Age: 77 Year
  Sex: Female
  Weight: 89 kg

DRUGS (3)
  1. METFORMIN HYDROCHLORIDE. [Suspect]
     Active Substance: METFORMIN HYDROCHLORIDE
     Dates: end: 20170829
  2. TAXOL [Suspect]
     Active Substance: PACLITAXEL
     Dates: end: 20170821
  3. CARBOPLATIN. [Suspect]
     Active Substance: CARBOPLATIN
     Dates: end: 20170821

REACTIONS (9)
  - Disease progression [None]
  - Abdominal pain [None]
  - Decreased appetite [None]
  - Device related infection [None]
  - Dyspnoea [None]
  - Infection [None]
  - Dysuria [None]
  - Nausea [None]
  - Streptococcus test positive [None]

NARRATIVE: CASE EVENT DATE: 20170829
